FAERS Safety Report 5975638-0 (Version None)
Quarter: 2008Q4

REPORT INFORMATION
  Report Type: 
  Country: None (occurrence: None)
  Receive Date: 20081128
  Receipt Date: 20081117
  Transmission Date: 20090506
  Serious: Yes (Hospitalization)
  Sender: FDA-Public Use
  Company Number: US025034

PATIENT
  Age: 69 Year
  Sex: Male

DRUGS (3)
  1. ARSENIC TRIOXIDE [Suspect]
     Indication: MYELODYSPLASTIC SYNDROME
     Dosage: 10.4 MG QWKLY DAYS 1, 8, 15, AND 22 INTRAVENOUS DRIP
     Route: 041
     Dates: start: 20080804, end: 20081020
  2. DECITABINE [Suspect]
     Indication: MYELODYSPLASTIC SYNDROME
     Dosage: 20 MG/M2 DAILY DAYS 1-5 INTRAVENOUS
     Route: 042
     Dates: start: 20080804, end: 20081010
  3. ASCORBIC ACID [Suspect]
     Indication: MYELODYSPLASTIC SYNDROME
     Dosage: 1000 MG QWKLY DAYS 1, 8, 15, AND 22 INTRAVENOUS
     Route: 042

REACTIONS (2)
  - FEBRILE NEUTROPENIA [None]
  - MUSCULAR WEAKNESS [None]
